FAERS Safety Report 4610284-2 (Version None)
Quarter: 2005Q1

REPORT INFORMATION
  Report Type: 
  Country: None (occurrence: None)
  Receive Date: 20050314
  Receipt Date: 20050228
  Transmission Date: 20050727
  Serious: Yes (Hospitalization, Other)
  Sender: FDA-Public Use
  Company Number: 2004239540US

PATIENT
  Age: 58 Year
  Sex: Female
  Weight: 59 kg

DRUGS (6)
  1. XANAX [Suspect]
     Indication: ANXIETY
     Dosage: 6 MG (2 MG, 3 IN 1 D), ORAL
     Route: 048
     Dates: start: 20030101
  2. XANAX [Suspect]
     Indication: PANIC DISORDER
     Dosage: 6 MG (2 MG, 3 IN 1 D), ORAL
     Route: 048
     Dates: start: 20030101
  3. ATENOLOL [Concomitant]
  4. NORTRIPTYLINE HYDROCHLORIDE [Concomitant]
  5. VICODIN [Concomitant]
  6. COMBIVENT [Concomitant]

REACTIONS (8)
  - BACK INJURY [None]
  - BACK PAIN [None]
  - DEHYDRATION [None]
  - DRUG WITHDRAWAL SYNDROME [None]
  - FALL [None]
  - GASTRIC DISORDER [None]
  - INTERVERTEBRAL DISC DEGENERATION [None]
  - SCOLIOSIS [None]
